FAERS Safety Report 12120443 (Version 2)
Quarter: 2016Q1

REPORT INFORMATION
  Report Type: Spontaneous
  Country: DE (occurrence: DE)
  Receive Date: 20160226
  Receipt Date: 20160329
  Transmission Date: 20160526
  Serious: Yes (Other)
  Sender: FDA-Public Use
  Company Number: DE-ELI_LILLY_AND_COMPANY-DE201602005838

PATIENT
  Age: 18 Year
  Sex: Male

DRUGS (4)
  1. STRATTERA [Suspect]
     Active Substance: ATOMOXETINE HYDROCHLORIDE
     Dosage: 50 MG, UNKNOWN
     Route: 048
     Dates: start: 201010
  2. STRATTERA [Suspect]
     Active Substance: ATOMOXETINE HYDROCHLORIDE
     Indication: ATTENTION DEFICIT/HYPERACTIVITY DISORDER
     Dosage: 35 MG, UNKNOWN
     Route: 048
     Dates: start: 200804
  3. STRATTERA [Suspect]
     Active Substance: ATOMOXETINE HYDROCHLORIDE
     Dosage: 60 MG, UNKNOWN
     Route: 048
     Dates: start: 201309
  4. STRATTERA [Suspect]
     Active Substance: ATOMOXETINE HYDROCHLORIDE
     Indication: LEARNING DISORDER
     Dosage: 40 MG, UNKNOWN
     Route: 048
     Dates: start: 200909

REACTIONS (4)
  - Blood creatine phosphokinase MB increased [Not Recovered/Not Resolved]
  - Epilepsy [Unknown]
  - Blood creatine phosphokinase increased [Not Recovered/Not Resolved]
  - Cardiomyopathy [Unknown]
